FAERS Safety Report 25283765 (Version 1)
Quarter: 2025Q2

REPORT INFORMATION
  Report Type: Spontaneous
  Country: DK (occurrence: DK)
  Receive Date: 20250508
  Receipt Date: 20250508
  Transmission Date: 20250716
  Serious: Yes (Other)
  Sender: OTSUKA
  Company Number: DK-OTSUKA-2024_025916

PATIENT
  Age: 52 Year
  Sex: Female

DRUGS (19)
  1. ABILIFY MAINTENA [Suspect]
     Active Substance: ARIPIPRAZOLE
     Indication: Schizophrenia
     Route: 065
     Dates: start: 20240726
  2. ARIPIPRAZOLE [Suspect]
     Active Substance: ARIPIPRAZOLE
     Indication: Product used for unknown indication
     Route: 065
     Dates: end: 20240821
  3. ABILIFY [Suspect]
     Active Substance: ARIPIPRAZOLE
     Indication: Product used for unknown indication
     Route: 065
     Dates: start: 20240821
  4. COLGATE DURAPHAT [Concomitant]
     Active Substance: SODIUM FLUORIDE
     Indication: Product used for unknown indication
     Route: 065
  5. MAGNESIUM HYDROXIDE [Concomitant]
     Active Substance: MAGNESIUM HYDROXIDE
     Indication: Product used for unknown indication
     Route: 065
  6. PANTOPRAZOLE [Concomitant]
     Active Substance: PANTOPRAZOLE
     Indication: Product used for unknown indication
     Dosage: 40 MG, QD (ENTERIC COATED TABLETS 40 MG, 1 TABLET NIGHT)
     Route: 065
  7. APOVIT D-VITAMIN [Concomitant]
     Indication: Product used for unknown indication
     Route: 065
  8. DOLOPROCT [FLUOCORTOLONE PIVALATE;LIDOCAINE HYDROCHLORIDE] [Concomitant]
     Indication: Product used for unknown indication
     Route: 054
  9. CANDEMOX [CANDESARTAN CILEXETIL] [Concomitant]
     Indication: Product used for unknown indication
     Dosage: 8 MG (1 TABLET MORNING)
     Route: 065
  10. ROSUVASTATIN [Concomitant]
     Active Substance: ROSUVASTATIN
     Indication: Product used for unknown indication
     Dosage: 5 MG, QD (FILM-COATED TABLETS, 1 TABLET DAILY)
     Route: 065
  11. DERMOVAT [BETAMETHASONE VALERATE] [Concomitant]
     Indication: Product used for unknown indication
     Route: 065
  12. VAGIFEM [Concomitant]
     Active Substance: ESTRADIOL
     Indication: Product used for unknown indication
     Route: 065
  13. XYLOCAINE [Concomitant]
     Active Substance: LIDOCAINE HYDROCHLORIDE
     Indication: Product used for unknown indication
     Route: 065
  14. ACETAMINOPHEN [Concomitant]
     Active Substance: ACETAMINOPHEN
     Indication: Product used for unknown indication
     Route: 065
  15. SUMATRIPTAN ACCORD [Concomitant]
     Indication: Product used for unknown indication
     Route: 065
  16. CHLORPROTHIXENE ACETATE [Concomitant]
     Active Substance: CHLORPROTHIXENE ACETATE
     Indication: Product used for unknown indication
     Route: 065
  17. MELATONIN [Concomitant]
     Active Substance: MELATONIN
     Indication: Product used for unknown indication
     Dosage: 3 MG, QD (1 TABLET EVENING)
     Route: 065
  18. PHENERGAN [Concomitant]
     Active Substance: PROMETHAZINE HYDROCHLORIDE
     Indication: Product used for unknown indication
     Dosage: 25 MG (FILM-COATED TABLETS, 1 TABLET NIGHT)
     Route: 065
  19. CARBOMER [Concomitant]
     Active Substance: CARBOMER
     Indication: Product used for unknown indication
     Route: 065

REACTIONS (5)
  - Psychotic disorder [Unknown]
  - Initial insomnia [Unknown]
  - Paranoia [Unknown]
  - Drug effect less than expected [Unknown]
  - Therapy cessation [Unknown]
